FAERS Safety Report 10072791 (Version 1)
Quarter: 2014Q2

REPORT INFORMATION
  Report Type: Spontaneous
  Country: US (occurrence: US)
  Receive Date: 20140411
  Receipt Date: 20140411
  Transmission Date: 20141212
  Serious: No
  Sender: FDA-Public Use
  Company Number: US-TEVA-475042USA

PATIENT
  Sex: 0

DRUGS (3)
  1. TREANDA [Suspect]
     Dosage: A FEW DOSES ONLY
  2. RITUXIMAB [Suspect]
  3. NEULASTA [Suspect]

REACTIONS (2)
  - Rash [Unknown]
  - Rash [Unknown]
